FAERS Safety Report 23449703 (Version 2)
Quarter: 2025Q4

REPORT INFORMATION
  Report Type: Report from Study
  Country: KR (occurrence: KR)
  Receive Date: 20240129
  Receipt Date: 20251217
  Transmission Date: 20260117
  Serious: Yes (Hospitalization, Other)
  Sender: GILEAD
  Company Number: KR-GILEAD-2024-0657322

PATIENT
  Age: 68 Year
  Sex: Male
  Weight: 59 kg

DRUGS (16)
  1. REMDESIVIR [Suspect]
     Active Substance: REMDESIVIR
     Indication: COVID-19
     Dosage: 200 MG, LOADING DOSE
     Route: 042
     Dates: start: 20230726, end: 20230726
  2. REMDESIVIR [Suspect]
     Active Substance: REMDESIVIR
     Dosage: 100 MG, MAINTENANCE DOSE
     Route: 042
     Dates: start: 20230727, end: 20230727
  3. REMDESIVIR [Suspect]
     Active Substance: REMDESIVIR
     Dosage: 100 MG, MAINTENANCE DOSE
     Route: 042
     Dates: start: 20230728, end: 20230728
  4. REMDESIVIR [Suspect]
     Active Substance: REMDESIVIR
     Dosage: 100 MG, MAINTENANCE DOSE
     Route: 042
     Dates: start: 20230729, end: 20230729
  5. REMDESIVIR [Suspect]
     Active Substance: REMDESIVIR
     Dosage: 100 MG, MAINTENANCE DOSE
     Route: 042
     Dates: start: 20230730, end: 20230730
  6. TACROLIMUS [Concomitant]
     Active Substance: TACROLIMUS
     Indication: Chronic kidney disease
     Dosage: UNK, BID
     Route: 048
  7. MYCOPHENOLATE MOFETIL [Concomitant]
     Active Substance: MYCOPHENOLATE MOFETIL
     Indication: Chronic kidney disease
     Dosage: 250 MG, BID
     Route: 048
  8. FEXUCLUE [Concomitant]
     Indication: Chronic kidney disease
     Dosage: 40 MG, QD
     Route: 048
  9. URSODIOL [Concomitant]
     Active Substance: URSODIOL
     Indication: Prophylaxis
     Dosage: 100 MG, BID
     Route: 048
  10. MEDILAC DS [Concomitant]
     Indication: Prophylaxis
     Dosage: 250 MG, BID
     Route: 048
  11. LEVOTHYROXINE SODIUM [Concomitant]
     Active Substance: LEVOTHYROXINE SODIUM
     Indication: Thyroidectomy
     Dosage: 0.05 MG, QD
     Route: 048
  12. COUGH S [Concomitant]
     Indication: COVID-19
     Dosage: UNK, TID
     Route: 048
  13. ACETYLCYSTEINE [Concomitant]
     Active Substance: ACETYLCYSTEINE
     Indication: COVID-19
  14. XYZAL [Concomitant]
     Active Substance: LEVOCETIRIZINE DIHYDROCHLORIDE
     Indication: COVID-19
  15. SULFAMETHOXAZOLE\TRIMETHOPRIM [Concomitant]
     Active Substance: SULFAMETHOXAZOLE\TRIMETHOPRIM
     Indication: COVID-19
  16. SUSPEN ER [Concomitant]
     Indication: COVID-19

REACTIONS (1)
  - Renal impairment [Recovered/Resolved]

NARRATIVE: CASE EVENT DATE: 20230804
